FAERS Safety Report 4452955-7 (Version None)
Quarter: 2004Q3

REPORT INFORMATION
  Report Type: 
  Country: None (occurrence: None)
  Receive Date: 20040916
  Receipt Date: 20040903
  Transmission Date: 20050211
  Serious: Yes (Hospitalization)
  Sender: FDA-Public Use
  Company Number: 2004-119522-NL

PATIENT
  Age: 47 Year
  Sex: Female
  Weight: 68.2 kg

DRUGS (2)
  1. NUVARING [Suspect]
     Indication: CONTRACEPTION
     Dosage: VAGINAL
     Dates: start: 20040119, end: 20040809
  2. NUVARING [Suspect]
     Indication: MENORRHAGIA
     Dosage: VAGINAL
     Dates: start: 20040119, end: 20040809

REACTIONS (19)
  - ANAEMIA [None]
  - ANXIETY [None]
  - BLOOD PRESSURE INCREASED [None]
  - CEREBROVASCULAR ACCIDENT [None]
  - DEHYDRATION [None]
  - DEPRESSION [None]
  - DIPLOPIA [None]
  - DYSARTHRIA [None]
  - FACIAL PALSY [None]
  - HEMIPARESIS [None]
  - MENTAL DISORDER [None]
  - MIGRAINE [None]
  - MONOPLEGIA [None]
  - NERVE COMPRESSION [None]
  - PARAESTHESIA [None]
  - SENSATION OF HEAVINESS [None]
  - SKIN DISCOLOURATION [None]
  - STRESS SYMPTOMS [None]
  - TENSION [None]
